FAERS Safety Report 6350512-9 (Version None)
Quarter: 2009Q3

REPORT INFORMATION
  Report Type: 
  Country: None (occurrence: None)
  Receive Date: 20090911
  Receipt Date: 20090622
  Transmission Date: 20100115
  Serious: No
  Sender: FDA-Public Use
  Company Number: US-ABBOTT-07P-163-0363152-00

PATIENT
  Sex: Female
  Weight: 61.29 kg

DRUGS (9)
  1. HUMIRA [Suspect]
     Indication: RHEUMATOID ARTHRITIS
     Route: 058
     Dates: start: 20061201
  2. WELLBUTRIN XL [Concomitant]
     Indication: DEPRESSION
     Route: 048
  3. LEXAPRO [Concomitant]
     Indication: ANXIETY
     Route: 048
  4. OXYBUTYNIN CHLORIDE [Concomitant]
     Indication: URGE INCONTINENCE
     Route: 048
  5. VYTORIN [Concomitant]
     Indication: BLOOD CHOLESTEROL
     Route: 048
  6. NABUMETONE [Concomitant]
     Indication: OSTEOARTHRITIS
     Route: 048
  7. NABUMETONE [Concomitant]
     Indication: RHEUMATOID ARTHRITIS
  8. CLARINEX [Concomitant]
     Indication: HYPERSENSITIVITY
     Route: 048
  9. RABEPRAZOLE SODIUM [Concomitant]
     Indication: GASTROOESOPHAGEAL REFLUX DISEASE
     Route: 048

REACTIONS (1)
  - INCORRECT DOSE ADMINISTERED [None]
